FAERS Safety Report 4464765-5 (Version None)
Quarter: 2004Q4

REPORT INFORMATION
  Report Type: 
  Country: None (occurrence: None)
  Receive Date: 20041004
  Receipt Date: 20040727
  Transmission Date: 20050328
  Serious: No
  Sender: FDA-Public Use
  Company Number: 377646

PATIENT
  Sex: Male

DRUGS (5)
  1. COREG [Suspect]
     Indication: DRUG USE FOR UNKNOWN INDICATION
     Dosage: 6.25MG AT NIGHT
     Route: 048
     Dates: start: 20040512
  2. DILTIAZEM [Concomitant]
     Dosage: 120MG UNKNOWN
     Route: 065
  3. OMEPRAZOLE [Concomitant]
     Dosage: 20MG UNKNOWN
     Route: 065
  4. SIMVASTATIN [Concomitant]
     Route: 065
  5. ASPIRIN [Concomitant]
     Dosage: 1U PER DAY
     Route: 065

REACTIONS (11)
  - ANXIETY [None]
  - BACK PAIN [None]
  - DIZZINESS [None]
  - FATIGUE [None]
  - HEART RATE INCREASED [None]
  - HYPERHIDROSIS [None]
  - INSOMNIA [None]
  - NAUSEA [None]
  - NERVOUSNESS [None]
  - NIGHTMARE [None]
  - STRESS SYMPTOMS [None]
